FAERS Safety Report 10644816 (Version 1)
Quarter: 2014Q4

REPORT INFORMATION
  Report Type: Report from Study
  Country: US (occurrence: US)
  Receive Date: 20141211
  Receipt Date: 20141211
  Transmission Date: 20150529
  Serious: No
  Sender: FDA-Public Use
  Company Number: US-AMGEN-USASL2014095264

PATIENT
  Age: 42 Year
  Sex: Female

DRUGS (1)
  1. ENBREL [Suspect]
     Active Substance: ETANERCEPT
     Indication: ANKYLOSING SPONDYLITIS
     Dosage: 25 MG, 2 TIMES/WK
     Route: 065
     Dates: start: 20130802

REACTIONS (6)
  - Bone pain [Recovering/Resolving]
  - Spinal pain [Recovering/Resolving]
  - Joint swelling [Recovering/Resolving]
  - Local swelling [Recovering/Resolving]
  - Arthralgia [Recovering/Resolving]
  - Bone swelling [Recovering/Resolving]

NARRATIVE: CASE EVENT DATE: 20130802
